FAERS Safety Report 9803930 (Version 2)
Quarter: 2014Q2

REPORT INFORMATION
  Report Type: Spontaneous
  Country: US (occurrence: US)
  Receive Date: 20140108
  Receipt Date: 20140423
  Transmission Date: 20141212
  Serious: Yes (Other)
  Sender: FDA-Public Use
  Company Number: US-PFIZER INC-2014003868

PATIENT
  Age: 32 Year
  Sex: Female

DRUGS (3)
  1. LYRICA [Suspect]
     Indication: MYALGIA
     Dosage: 75 MG, 2X/DAY
     Route: 048
     Dates: start: 20131216, end: 20140130
  2. LYRICA [Suspect]
     Indication: MYOSITIS
  3. ALPRAZOLAM [Concomitant]
     Indication: INSOMNIA
     Dosage: 1 MG, 2X/DAY
     Route: 048
     Dates: start: 20131216, end: 20140315

REACTIONS (8)
  - Off label use [Unknown]
  - Suicidal ideation [Unknown]
  - Aphagia [Unknown]
  - Hallucination [Unknown]
  - Panic attack [Unknown]
  - Insomnia [Unknown]
  - Vision blurred [Unknown]
  - Nausea [Unknown]
